FAERS Safety Report 10018036 (Version 1)
Quarter: 2014Q1

REPORT INFORMATION
  Report Type: Spontaneous
  Country: US (occurrence: US)
  Receive Date: 20140318
  Receipt Date: 20140318
  Transmission Date: 20141002
  Serious: No
  Sender: FDA-Public Use
  Company Number: US-BRISTOL-MYERS SQUIBB COMPANY-18890434

PATIENT
  Age: 41 Year
  Sex: Male
  Weight: 129.25 kg

DRUGS (4)
  1. ERBITUX [Suspect]
     Indication: COLON CANCER
     Route: 042
     Dates: start: 2013
  2. XELODA [Concomitant]
     Dosage: 2 WEEKS IN AND THEN 1 WEEK OFF.
  3. OXALIPLATIN [Concomitant]
  4. EMEND [Concomitant]
     Indication: NAUSEA

REACTIONS (1)
  - Rash pustular [Recovering/Resolving]
